FAERS Safety Report 6642620-X (Version None)
Quarter: 2010Q1

REPORT INFORMATION
  Report Type: 
  Country: None (occurrence: None)
  Receive Date: 20100319
  Receipt Date: 20100317
  Transmission Date: 20100710
  Serious: Yes (Hospitalization, Other)
  Sender: FDA-Public Use
  Company Number: US-MERCK-0802USA03901

PATIENT
  Age: 68 Year
  Sex: Female
  Weight: 80 kg

DRUGS (4)
  1. FOSAMAX [Suspect]
     Indication: OSTEOPOROSIS
     Route: 048
     Dates: start: 20050329, end: 20070403
  2. FOSAMAX [Suspect]
     Route: 048
     Dates: start: 20010601
  3. LOTREL [Concomitant]
     Indication: HYPERTENSION
     Route: 065
  4. CELEBREX [Concomitant]
     Route: 065

REACTIONS (23)
  - BRONCHITIS [None]
  - CARDIOVASCULAR DISORDER [None]
  - CHEST PAIN [None]
  - DERMAL CYST [None]
  - FALL [None]
  - GASTRITIS [None]
  - GINGIVAL INFECTION [None]
  - HYPERTENSION [None]
  - HYPOAESTHESIA ORAL [None]
  - HYPOTENSION [None]
  - IMPAIRED HEALING [None]
  - JAW DISORDER [None]
  - LIPOMA [None]
  - LOSS OF CONSCIOUSNESS [None]
  - ORAL DISORDER [None]
  - OSTEOMYELITIS [None]
  - OSTEONECROSIS [None]
  - TOOTH DISORDER [None]
  - TOOTH FRACTURE [None]
  - TOOTHACHE [None]
  - TREATMENT NONCOMPLIANCE [None]
  - VERTIGO [None]
  - WRIST FRACTURE [None]
